FAERS Safety Report 9570570 (Version 1)
Quarter: 2013Q3

REPORT INFORMATION
  Report Type: Spontaneous
  Country: US (occurrence: None)
  Receive Date: 20130926
  Receipt Date: 20130926
  Transmission Date: 20140515
  Serious: Yes (Disabling)
  Sender: FDA-Public Use
  Company Number: None

PATIENT
  Age: 62 Year
  Sex: Female
  Weight: 90.72 kg

DRUGS (1)
  1. LEVOFLOXACIN [Suspect]
     Indication: BRONCHITIS
     Dosage: ONE, ONCE DAILY, TAKEN BY MOUTH
     Dates: start: 20130920, end: 20130925

REACTIONS (10)
  - Muscle spasms [None]
  - Muscle spasms [None]
  - Movement disorder [None]
  - Local swelling [None]
  - Hypoaesthesia [None]
  - Paraesthesia [None]
  - Photophobia [None]
  - Muscle spasms [None]
  - Middle insomnia [None]
  - Distractibility [None]
